FAERS Safety Report 4421051-7 (Version None)
Quarter: 2004Q3

REPORT INFORMATION
  Report Type: 
  Country: None (occurrence: None)
  Receive Date: 20040809
  Receipt Date: 20040723
  Transmission Date: 20050211
  Serious: Yes (Other)
  Sender: FDA-Public Use
  Company Number: PHBS2004BR09750

PATIENT
  Age: 24 Year
  Sex: Male
  Weight: 70 kg

DRUGS (4)
  1. MELLARIL [Suspect]
     Indication: PSYCHOTIC DISORDER
     Dosage: UNK, UNK
     Route: 048
     Dates: start: 20010101
  2. MELLARIL [Suspect]
     Dosage: 50 MG, QHS
     Route: 048
     Dates: start: 20030101
  3. MELLARIL [Suspect]
     Dosage: 50 MG, QHS
     Route: 048
     Dates: start: 20040601
  4. DIAZEPAM [Concomitant]
     Dosage: 5 MG/D
     Route: 065
     Dates: start: 20030101

REACTIONS (6)
  - DRY MOUTH [None]
  - EJACULATION DISORDER [None]
  - HEADACHE [None]
  - INSOMNIA [None]
  - VISUAL DISTURBANCE [None]
  - WEIGHT INCREASED [None]
